FAERS Safety Report 5970280-X (Version None)
Quarter: 2008Q4

REPORT INFORMATION
  Report Type: 
  Country: None (occurrence: None)
  Receive Date: 20081126
  Receipt Date: 20081118
  Transmission Date: 20090506
  Serious: Yes (Other)
  Sender: FDA-Public Use
  Company Number: AT-PFIZER INC-2008098574

PATIENT
  Sex: Female

DRUGS (1)
  1. TRESLEEN [Suspect]
     Indication: DEPRESSION
     Route: 048
     Dates: start: 20081001

REACTIONS (1)
  - PLATELET COUNT INCREASED [None]
